FAERS Safety Report 7611333-X (Version None)
Quarter: 2011Q3

REPORT INFORMATION
  Report Type: 
  Country: None (occurrence: None)
  Receive Date: 20110715
  Receipt Date: 20110616
  Transmission Date: 20111222
  Serious: No
  Sender: FDA-Public Use
  Company Number: US-BAYER-2011-053139

PATIENT
  Sex: Male
  Weight: 113 kg

DRUGS (1)
  1. ALEVE (CAPLET) [Suspect]
     Indication: ANALGESIC THERAPY
     Dosage: DAILY, UNK, UNK
     Route: 048
     Dates: start: 20110501

REACTIONS (1)
  - OEDEMA PERIPHERAL [None]
